FAERS Safety Report 8535570-5 (Version None)
Quarter: 2012Q2

REPORT INFORMATION
  Report Type: 
  Country: None (occurrence: None)
  Receive Date: 20120412
  Receipt Date: 20100908
  Transmission Date: 20120825
  Serious: Yes (Other)
  Sender: FDA-Public Use
  Company Number: PHEH2010US02629

PATIENT
  Age: 53 Year
  Sex: Female

DRUGS (5)
  1. PROZAC [Concomitant]
  2. WELLBUTRIN [Concomitant]
  3. CLOZARIL [Suspect]
     Indication: SCHIZOPHRENIA
     Dosage: 75 MG, QD, ORAL
     Route: 048
  4. ATIVAN [Concomitant]
  5. ACERBON (LISINOPRIL) [Concomitant]

REACTIONS (1)
  - NEUTROPHIL COUNT DECREASED [None]
